FAERS Safety Report 4374835-8 (Version None)
Quarter: 2004Q2

REPORT INFORMATION
  Report Type: 
  Country: None (occurrence: None)
  Receive Date: 20040604
  Receipt Date: 20040527
  Transmission Date: 20050107
  Serious: Yes (Hospitalization, Other)
  Sender: FDA-Public Use
  Company Number: 2004-05-0066

PATIENT
  Age: 36 Year
  Sex: Female

DRUGS (2)
  1. VIRAFERONPEG [Suspect]
     Indication: HEPATITIS C
     Dates: start: 20030901
  2. REBETOL [Suspect]
     Indication: HEPATITIS C
     Dosage: ORAL
     Route: 048
     Dates: start: 20030901

REACTIONS (4)
  - ALLOGENIC BONE MARROW TRANSPLANTATION THERAPY [None]
  - APLASIA [None]
  - CHRONIC MYELOID LEUKAEMIA [None]
  - WHITE BLOOD CELL COUNT DECREASED [None]
